FAERS Safety Report 10912949 (Version 1)
Quarter: 2015Q1

REPORT INFORMATION
  Report Type: Report from Study
  Country: US (occurrence: US)
  Receive Date: 20150313
  Receipt Date: 20150313
  Transmission Date: 20150721
  Serious: Yes (Hospitalization, Other)
  Sender: FDA-Public Use
  Company Number: US-ABBVIE-15K-163-1357388-00

PATIENT
  Age: 63 Year
  Sex: Female

DRUGS (1)
  1. HUMIRA [Suspect]
     Active Substance: ADALIMUMAB
     Indication: PSORIASIS
     Route: 065
     Dates: start: 2013

REACTIONS (8)
  - Chest pain [Recovered/Resolved]
  - Cardiomyopathy [Not Recovered/Not Resolved]
  - Device breakage [Recovered/Resolved]
  - Device dislocation [Unknown]
  - Bundle branch block left [Recovered/Resolved]
  - Anxiety [Unknown]
  - Cardiac failure [Unknown]
  - Off label use [Not Recovered/Not Resolved]

NARRATIVE: CASE EVENT DATE: 2013
